FAERS Safety Report 8052516-7 (Version None)
Quarter: 2012Q1

REPORT INFORMATION
  Report Type: 
  Country: None (occurrence: None)
  Receive Date: 20120118
  Receipt Date: 20120110
  Transmission Date: 20120608
  Serious: Yes (Other)
  Sender: FDA-Public Use
  Company Number: US-AMGEN-USASP2012001860

PATIENT
  Sex: Female

DRUGS (2)
  1. THYROID MEDICATION [Concomitant]
  2. PROLIA [Suspect]
     Indication: PRODUCT USED FOR UNKNOWN INDICATION
     Dosage: 3 MG, QMO

REACTIONS (12)
  - CYSTITIS [None]
  - PANCREATITIS CHRONIC [None]
  - INSOMNIA [None]
  - GASTROOESOPHAGEAL REFLUX DISEASE [None]
  - THYROIDECTOMY [None]
  - THYROID HORMONE REPLACEMENT THERAPY [None]
  - BONE PAIN [None]
  - BACK PAIN [None]
  - TINNITUS [None]
  - BLOOD CHOLESTEROL INCREASED [None]
  - FLATULENCE [None]
  - DYSPEPSIA [None]
